FAERS Safety Report 5157291-1 (Version None)
Quarter: 2006Q4

REPORT INFORMATION
  Report Type: 
  Country: None (occurrence: None)
  Receive Date: 20061127
  Receipt Date: 20061113
  Transmission Date: 20070319
  Serious: Yes (Other)
  Sender: FDA-Public Use
  Company Number: PHBS2006ES17738

PATIENT
  Age: 70 Year
  Sex: Male

DRUGS (4)
  1. ZOLEDRONIC ACID [Suspect]
     Indication: METASTASES TO BONE
     Dosage: 4 MG, UNK
     Route: 042
  2. VINORELBINE [Concomitant]
     Route: 065
  3. CALCIUM [Concomitant]
     Route: 048
  4. VITAMIN D [Concomitant]
     Route: 048

REACTIONS (1)
  - OSTEONECROSIS [None]
